FAERS Safety Report 4864960-7 (Version None)
Quarter: 2005Q4

REPORT INFORMATION
  Report Type: 
  Country: None (occurrence: None)
  Receive Date: 20051212
  Receipt Date: 20051127
  Transmission Date: 20060501
  Serious: Yes (Hospitalization)
  Sender: FDA-Public Use
  Company Number: 2005BH003162

PATIENT
  Age: 31 Year
  Sex: Male
  Weight: 64 kg

DRUGS (1)
  1. PROPLEX T [Suspect]
     Indication: HAEMORRHAGE
     Dosage: 4000 UNITS; 2X A WEEK; IV
     Route: 042
     Dates: start: 19860101, end: 20030101

REACTIONS (4)
  - BLOOD CHOLESTEROL INCREASED [None]
  - DISEASE PROGRESSION [None]
  - NEPHROTIC SYNDROME [None]
  - RENAL FAILURE [None]
